FAERS Safety Report 6041857-0 (Version None)
Quarter: 2009Q1

REPORT INFORMATION
  Report Type: 
  Country: None (occurrence: None)
  Receive Date: 20090116
  Receipt Date: 20090112
  Transmission Date: 20090719
  Serious: No
  Sender: FDA-Public Use
  Company Number: US-JNJFOC-20090102500

PATIENT
  Sex: Male
  Weight: 72.58 kg

DRUGS (3)
  1. DURAGESIC-100 [Suspect]
     Indication: NEURALGIA
     Route: 062
  2. NEURONTIN [Concomitant]
     Indication: PAIN
     Route: 048
  3. CYMBALTA [Concomitant]
     Indication: PAIN
     Route: 048

REACTIONS (4)
  - APPLICATION SITE REACTION [None]
  - INAPPROPRIATE SCHEDULE OF DRUG ADMINISTRATION [None]
  - NEURALGIA [None]
  - WRONG TECHNIQUE IN DRUG USAGE PROCESS [None]
